FAERS Safety Report 5530151-X (Version None)
Quarter: 2007Q4

REPORT INFORMATION
  Report Type: 
  Country: None (occurrence: None)
  Receive Date: 20071130
  Receipt Date: 20071120
  Transmission Date: 20080405
  Serious: Yes (Other)
  Sender: FDA-Public Use
  Company Number: US-JNJFOC-20071108117

PATIENT
  Sex: Female
  Weight: 61.24 kg

DRUGS (3)
  1. FENTANYL TRANSDERMAL SYSTEM [Suspect]
     Indication: OSTEOARTHRITIS
     Route: 062
  2. FENTANYL TRANSDERMAL SYSTEM [Suspect]
     Indication: FIBROMYALGIA
     Route: 062
  3. BUMEX [Concomitant]
     Indication: DIURETIC THERAPY
     Route: 048

REACTIONS (5)
  - BREAKTHROUGH PAIN [None]
  - CONSTIPATION [None]
  - FAECALOMA [None]
  - HEPATIC STEATOSIS [None]
  - HIATUS HERNIA [None]
